FAERS Safety Report 7293567-X (Version None)
Quarter: 2011Q1

REPORT INFORMATION
  Report Type: 
  Country: None (occurrence: None)
  Receive Date: 20110202
  Receipt Date: 20110119
  Transmission Date: 20110831
  Serious: Yes (Death)
  Sender: FDA-Public Use
  Company Number: 2011000296

PATIENT
  Age: 71 Year
  Sex: Female
  Weight: 47.6277 kg

DRUGS (5)
  1. ERLOTINIB (ERLOTINIB) (TABLET) (ERLOTINIB) [Suspect]
     Indication: LUNG SQUAMOUS CELL CARCINOMA STAGE UNSPECIFIED
     Dosage: 150 MG, ORAL
     Route: 048
     Dates: start: 20101203, end: 20110113
  2. ADVIL (IBUPROFEN) [Concomitant]
  3. PAZOPANIB/PLACEBO [Suspect]
     Indication: LUNG SQUAMOUS CELL CARCINOMA STAGE UNSPECIFIED
     Dosage: 600 MG, ORAL
     Route: 048
     Dates: start: 20101203, end: 20110113
  4. AMBIEN [Concomitant]
  5. BETIMOL (TIMOLOL) [Concomitant]

REACTIONS (3)
  - PULMONARY EMBOLISM [None]
  - SUDDEN DEATH [None]
  - MYOCARDIAL INFARCTION [None]
